FAERS Safety Report 8821844 (Version 3)
Quarter: 2012Q4

REPORT INFORMATION
  Report Type: 
  Country: US (occurrence: US)
  Receive Date: 20121002
  Receipt Date: 20121121
  Transmission Date: 20130627
  Serious: Yes (Hospitalization)
  Sender: FDA-Public Use
  Company Number: US-AMGEN-USASP2012061431

PATIENT
  Age: 57 Year
  Sex: Male
  Weight: 95 kg

DRUGS (2)
  1. NEULASTA [Suspect]
     Indication: NEUTROPENIA
     Dosage: 6 mg, one time dose
     Route: 058
     Dates: start: 20120824, end: 20120824
  2. RITUXAN [Concomitant]
     Indication: LYMPHOMA
     Dosage: 844 mg, q2mo
     Route: 042
     Dates: start: 20120711

REACTIONS (2)
  - Anaphylactic reaction [Recovered/Resolved]
  - Hypersensitivity [Recovered/Resolved]
